FAERS Safety Report 9608436 (Version 3)
Quarter: 2014Q1

REPORT INFORMATION
  Report Type: Report from Study
  Country: JP (occurrence: JP)
  Receive Date: 20131009
  Receipt Date: 20140211
  Transmission Date: 20141002
  Serious: Yes (Hospitalization, Other)
  Sender: FDA-Public Use
  Company Number: PHHY2012JP079907

PATIENT
  Age: 21 Year
  Sex: Female
  Weight: 46 kg

DRUGS (9)
  1. AFINITOR [Suspect]
     Indication: PANCREATIC NEUROENDOCRINE TUMOUR
     Dosage: 10 MG, QD
     Route: 048
     Dates: start: 20120106, end: 20120116
  2. AFINITOR [Suspect]
     Dosage: 5 MG, QD
     Route: 048
     Dates: start: 20120124, end: 20120413
  3. AFINITOR [Suspect]
     Dosage: 10 MG, QD
     Route: 048
     Dates: start: 20120414, end: 20120626
  4. AFINITOR [Suspect]
     Dosage: 5 MG, DAILY
     Dates: start: 20121123, end: 20121126
  5. AFINITOR [Suspect]
     Dosage: 10 MG, DAILY
     Dates: start: 20121127, end: 20121212
  6. AFINITOR [Suspect]
     Dosage: 5 MG, DAILY
     Dates: start: 20121213, end: 20130214
  7. HACHIAZULE [Concomitant]
     Indication: PROPHYLAXIS
     Dosage: 6 G, UNK
     Dates: start: 20120105, end: 20120209
  8. EBASTEL [Concomitant]
     Dosage: 10 MG, QD
     Route: 048
  9. BAYASPIRIN [Concomitant]
     Dosage: 100 MG, UNK
     Route: 048

REACTIONS (14)
  - Stomatitis [Recovered/Resolved]
  - Neutrophil count decreased [Recovered/Resolved]
  - C-reactive protein increased [Unknown]
  - Rash generalised [Recovered/Resolved]
  - Rash [Recovered/Resolved]
  - Lymphocyte count decreased [Unknown]
  - Haemoglobin decreased [Unknown]
  - Aspartate aminotransferase increased [Unknown]
  - Alanine aminotransferase increased [Unknown]
  - Gamma-glutamyltransferase increased [Unknown]
  - Blood alkaline phosphatase increased [Unknown]
  - Metastases to liver [Unknown]
  - Pancreatic neuroendocrine tumour [Unknown]
  - Malignant neoplasm progression [Unknown]
